FAERS Safety Report 5402223-1 (Version None)
Quarter: 2007Q3

REPORT INFORMATION
  Report Type: 
  Country: None (occurrence: None)
  Receive Date: 20070727
  Receipt Date: 20070718
  Transmission Date: 20080115
  Serious: Yes (Other)
  Sender: FDA-Public Use
  Company Number: 2007-03386

PATIENT
  Age: 92 Year
  Sex: Male

DRUGS (2)
  1. PREDNISONE TAB [Suspect]
     Indication: TEMPORAL ARTERITIS
     Dosage: 60 MG, DAILY, ORAL
     Route: 048
  2. METHOTREXATE TABLET [Concomitant]

REACTIONS (12)
  - HERPES ZOSTER [None]
  - IMPAIRED HEALING [None]
  - MALIGNANT MELANOMA [None]
  - METASTASES TO LUNG [None]
  - MUSCULAR WEAKNESS [None]
  - NEUROENDOCRINE CARCINOMA OF THE SKIN [None]
  - NEUROMYOPATHY [None]
  - NEUROPATHY PERIPHERAL [None]
  - OSTEOPOROSIS [None]
  - POST HERPETIC NEURALGIA [None]
  - SKIN ATROPHY [None]
  - SQUAMOUS CELL CARCINOMA [None]
